FAERS Safety Report 7732804-1 (Version None)
Quarter: 2011Q3

REPORT INFORMATION
  Report Type: 
  Country: None (occurrence: None)
  Receive Date: 20110901
  Receipt Date: 20110817
  Transmission Date: 20111222
  Serious: Yes (Hospitalization, Other)
  Sender: FDA-Public Use
  Company Number: AUR-APL-2011-04786

PATIENT
  Age: 90 Year
  Sex: Female

DRUGS (7)
  1. RAMIPRIL [Suspect]
     Indication: HYPERTENSION
     Dosage: ORAL
     Route: 048
  2. AMIODARONE HCL [Concomitant]
  3. LASIX [Suspect]
     Indication: HYPERTENSION
     Dosage: ORAL
     Route: 048
  4. ASPIRIN [Concomitant]
  5. BISOPROLOL FUMARATE [Concomitant]
  6. CITALOPRAM HYDROBROMIDE [Suspect]
     Indication: AFFECTIVE DISORDER
     Dosage: (20 MG), ORAL
     Route: 048
     Dates: start: 20110712, end: 20110715
  7. ESOMEPRAZOLE (ESOMEPRAZOLE) [Suspect]
     Indication: GASTROOESOPHAGEAL REFLUX DISEASE
     Dosage: ORAL
     Route: 048

REACTIONS (5)
  - DECREASED APPETITE [None]
  - FLATULENCE [None]
  - DYSPEPSIA [None]
  - RENAL FAILURE [None]
  - INAPPROPRIATE ANTIDIURETIC HORMONE SECRETION [None]
